FAERS Safety Report 13956525 (Version 6)
Quarter: 2019Q1

REPORT INFORMATION
  Report Type: Spontaneous
  Country: US (occurrence: US)
  Receive Date: 20170912
  Receipt Date: 20190221
  Transmission Date: 20190417
  Serious: Yes (Hospitalization)
  Sender: FDA-Public Use
  Company Number: US-DSJP-DSU-2017-136708

PATIENT

DRUGS (2)
  1. BENICAR [Suspect]
     Active Substance: OLMESARTAN MEDOXOMIL
     Indication: PRODUCT USED FOR UNKNOWN INDICATION
     Dosage: UNK
     Dates: start: 20061001, end: 20150705
  2. BENICAR HCT [Suspect]
     Active Substance: HYDROCHLOROTHIAZIDE\OLMESARTAN MEDOXOMIL
     Indication: HYPERTENSION
     Dosage: 20/12.5MG, QD
     Route: 048
     Dates: end: 20150705

REACTIONS (2)
  - Sprue-like enteropathy [Recovering/Resolving]
  - Gastrooesophageal reflux disease [Recovered/Resolved]

NARRATIVE: CASE EVENT DATE: 20110728
